FAERS Safety Report 15781821 (Version 1)
Quarter: 2019Q1

REPORT INFORMATION
  Report Type: Spontaneous
  Country: US (occurrence: US)
  Receive Date: 20190102
  Receipt Date: 20190102
  Transmission Date: 20190417
  Serious: Yes (Other)
  Sender: FDA-Public Use
  Company Number: US-MYLANLABS-14X-163-1180535-00

PATIENT
  Age: 42 Year
  Sex: Female

DRUGS (2)
  1. CRINONE [Suspect]
     Active Substance: PROGESTERONE
     Indication: PREGNANCY
     Dosage: 8 PERCENT, BID
     Route: 067
     Dates: start: 20140519, end: 20140520
  2. ESTRADIOL. [Suspect]
     Active Substance: ESTRADIOL
     Indication: PREGNANCY
     Dosage: 2 MILLIGRAM, TID (6 MG PER DAY)
     Route: 048
     Dates: start: 20140304, end: 20140514

REACTIONS (4)
  - Vaginal discharge [Unknown]
  - Foetal heart rate abnormal [Unknown]
  - Maternal exposure during pregnancy [Recovered/Resolved]
  - Abortion spontaneous [Recovered/Resolved]

NARRATIVE: CASE EVENT DATE: 201405
